FAERS Safety Report 11624333 (Version 1)
Quarter: 2015Q4

REPORT INFORMATION
  Report Type: Spontaneous
  Country: US (occurrence: None)
  Receive Date: 20151009
  Receipt Date: 20151009
  Transmission Date: 20160304
  Serious: No
  Sender: FDA-Public Use
  Company Number: None

PATIENT

DRUGS (1)
  1. MAGNESIUM CITRATE ORAL SOLN-LEMON [Suspect]
     Active Substance: MAGNESIUM CITRATE
     Dates: start: 20151008

REACTIONS (1)
  - Product label issue [None]

NARRATIVE: CASE EVENT DATE: 20151008
